FAERS Safety Report 9345441 (Version 23)
Quarter: 2017Q1

REPORT INFORMATION
  Report Type: Spontaneous
  Country: CA (occurrence: CA)
  Receive Date: 20130613
  Receipt Date: 20170124
  Transmission Date: 20170429
  Serious: Yes (Hospitalization, Other)
  Sender: FDA-Public Use
  Company Number: CA-ROCHE-1054189

PATIENT
  Age: 63 Year
  Sex: Female

DRUGS (26)
  1. XOLAIR [Suspect]
     Active Substance: OMALIZUMAB
     Dosage: 225 MG, BIW
     Route: 058
     Dates: start: 20090530
  2. XOLAIR [Suspect]
     Active Substance: OMALIZUMAB
     Route: 058
     Dates: start: 20150617
  3. XOLAIR [Suspect]
     Active Substance: OMALIZUMAB
     Route: 058
     Dates: start: 20150715
  4. XOLAIR [Suspect]
     Active Substance: OMALIZUMAB
     Route: 058
     Dates: start: 20151126
  5. ATROVENT [Concomitant]
     Active Substance: IPRATROPIUM BROMIDE
     Indication: PRODUCT USED FOR UNKNOWN INDICATION
     Route: 065
  6. XOLAIR [Suspect]
     Active Substance: OMALIZUMAB
     Dosage: UNK
     Route: 058
     Dates: start: 20130604
  7. XOLAIR [Suspect]
     Active Substance: OMALIZUMAB
     Route: 058
     Dates: start: 20151008
  8. XOLAIR [Suspect]
     Active Substance: OMALIZUMAB
     Route: 058
     Dates: start: 20160331
  9. XOLAIR [Suspect]
     Active Substance: OMALIZUMAB
     Dosage: UNK
     Route: 058
     Dates: start: 20170105
  10. XOLAIR [Suspect]
     Active Substance: OMALIZUMAB
     Route: 058
     Dates: start: 20160303
  11. XOLAIR [Suspect]
     Active Substance: OMALIZUMAB
     Dosage: UNK
     Route: 058
     Dates: start: 20160728
  12. XOLAIR [Suspect]
     Active Substance: OMALIZUMAB
     Route: 058
     Dates: start: 20160414
  13. XOLAIR [Suspect]
     Active Substance: OMALIZUMAB
     Dosage: UNK
     Route: 058
     Dates: start: 20160804
  14. XOLAIR [Suspect]
     Active Substance: OMALIZUMAB
     Indication: ASTHMA
     Dosage: 300 MG, EVERY 4 WEEKS
     Route: 058
     Dates: start: 20070711
  15. XOLAIR [Suspect]
     Active Substance: OMALIZUMAB
     Dosage: 225 MG, BIW
     Route: 058
     Dates: start: 20150306
  16. XOLAIR [Suspect]
     Active Substance: OMALIZUMAB
     Route: 058
     Dates: start: 20160609
  17. XOLAIR [Suspect]
     Active Substance: OMALIZUMAB
     Dosage: UNK
     Route: 058
     Dates: start: 20160623
  18. VENTOLIN [Concomitant]
     Active Substance: ALBUTEROL SULFATE
     Indication: PRODUCT USED FOR UNKNOWN INDICATION
     Route: 065
  19. XOLAIR [Suspect]
     Active Substance: OMALIZUMAB
     Route: 058
     Dates: start: 20150423
  20. XOLAIR [Suspect]
     Active Substance: OMALIZUMAB
     Route: 058
     Dates: start: 20151105
  21. XOLAIR [Suspect]
     Active Substance: OMALIZUMAB
     Route: 058
     Dates: start: 20160428
  22. XOLAIR [Suspect]
     Active Substance: OMALIZUMAB
     Route: 058
     Dates: start: 20160526
  23. XOLAIR [Suspect]
     Active Substance: OMALIZUMAB
     Route: 058
     Dates: start: 20130515
  24. XOLAIR [Suspect]
     Active Substance: OMALIZUMAB
     Route: 058
     Dates: start: 20151210
  25. XOLAIR [Suspect]
     Active Substance: OMALIZUMAB
     Dosage: 225 MG, BIW
     Route: 058
     Dates: start: 20090330
  26. SYMBICORT [Concomitant]
     Active Substance: BUDESONIDE\FORMOTEROL FUMARATE DIHYDRATE
     Indication: PRODUCT USED FOR UNKNOWN INDICATION
     Dosage: UNK
     Route: 065

REACTIONS (14)
  - Respiratory disorder [Unknown]
  - Malaise [Unknown]
  - Productive cough [Not Recovered/Not Resolved]
  - Sinusitis [Unknown]
  - Heart rate increased [Unknown]
  - Fungal infection [Unknown]
  - Bronchitis [Recovering/Resolving]
  - Neutrophil count increased [Unknown]
  - Eosinophil count increased [Unknown]
  - Stress [Unknown]
  - Asthma [Recovering/Resolving]
  - Dyspnoea [Unknown]
  - Cough [Not Recovered/Not Resolved]
  - Breath sounds abnormal [Unknown]

NARRATIVE: CASE EVENT DATE: 201201
